FAERS Safety Report 25924451 (Version 1)
Quarter: 2025Q4

REPORT INFORMATION
  Report Type: Spontaneous
  Country: GA (occurrence: GA)
  Receive Date: 20251015
  Receipt Date: 20251015
  Transmission Date: 20260118
  Serious: Yes (Other)
  Sender: VIIV
  Company Number: GA-VIIV HEALTHCARE-GA2025GSK129888

PATIENT
  Sex: Male
  Weight: 3.24 kg

DRUGS (3)
  1. DOLUTEGRAVIR [Suspect]
     Active Substance: DOLUTEGRAVIR
     Indication: HIV infection
     Dosage: UNK
  2. TENOFOVIR [Suspect]
     Active Substance: TENOFOVIR
     Indication: HIV infection
     Dosage: UNK
  3. LAMIVUDINE [Suspect]
     Active Substance: LAMIVUDINE
     Indication: HIV infection
     Dosage: UNK

REACTIONS (3)
  - HIV infection [Recovered/Resolved]
  - Human immunodeficiency virus transmission [Recovered/Resolved]
  - Foetal exposure during pregnancy [Unknown]
